FAERS Safety Report 10573008 (Version 1)
Quarter: 2014Q4

REPORT INFORMATION
  Report Type: Spontaneous
  Country: US (occurrence: None)
  Receive Date: 20141106
  Receipt Date: 20141106
  Transmission Date: 20150529
  Serious: Yes (Other)
  Sender: FDA-Public Use
  Company Number: 2014BEX00001

PATIENT
  Age: 72 Year
  Sex: Male
  Weight: 93 kg

DRUGS (3)
  1. CHLORTHALIDONE. [Concomitant]
     Active Substance: CHLORTHALIDONE
  2. CARVEDILOL. [Suspect]
     Active Substance: CARVEDILOL
     Indication: CARDIAC OPERATION
     Dosage: 1X/DAY
     Route: 048
     Dates: start: 201401
  3. LISINOPRIL. [Concomitant]
     Active Substance: LISINOPRIL

REACTIONS (4)
  - Muscle spasms [None]
  - Activities of daily living impaired [None]
  - Eye irritation [None]
  - Trismus [None]

NARRATIVE: CASE EVENT DATE: 201402
